FAERS Safety Report 22065042 (Version 1)
Quarter: 2023Q1

REPORT INFORMATION
  Report Type: Report from Study
  Country: EG (occurrence: EG)
  Receive Date: 20230306
  Receipt Date: 20230306
  Transmission Date: 20230418
  Serious: Yes (Other)
  Sender: FDA-Public Use
  Company Number: EG-002147023-NVSC2023EG047275

PATIENT
  Sex: Female

DRUGS (5)
  1. KISQALI [Suspect]
     Active Substance: RIBOCICLIB
     Indication: Breast cancer metastatic
     Dosage: 3 DOSAGE FORM, (3 TABLETS ONCE PER DAY FOR 21 DAYS AND 1 WEEK FREE)
     Route: 065
     Dates: start: 2020, end: 20230214
  2. KISQALI [Suspect]
     Active Substance: RIBOCICLIB
     Indication: Metastases to liver
  3. KISQALI [Suspect]
     Active Substance: RIBOCICLIB
     Indication: Metastases to bone
  4. FEMARA [Suspect]
     Active Substance: LETROZOLE
     Indication: Neoplasm malignant
     Dosage: 1 DOSAGE FORM, QD, (1 TABLET DAILY)
     Route: 065
     Dates: start: 2020
  5. OSTEOCARE [Concomitant]
     Active Substance: CALCIUM\CHOLECALCIFEROL\MAGNESIUM\ZINC
     Indication: Bone disorder
     Dosage: 1 DOSAGE FORM, QD, (500) (1 TABLET DAILY) (START DATE 5 YEARS AGO)
     Route: 065

REACTIONS (4)
  - Anxiety [Not Recovered/Not Resolved]
  - Cough [Not Recovered/Not Resolved]
  - Tumour marker increased [Unknown]
  - Drug tolerance [Not Recovered/Not Resolved]

NARRATIVE: CASE EVENT DATE: 20200101
